FAERS Safety Report 25724343 (Version 2)
Quarter: 2025Q3

REPORT INFORMATION
  Report Type: Spontaneous
  Country: US (occurrence: US)
  Receive Date: 20250826
  Receipt Date: 20250829
  Transmission Date: 20251021
  Serious: No
  Sender: SANDOZ
  Company Number: US-SANDOZ-SDZ2025US060179

PATIENT
  Age: 74 Year
  Sex: Male

DRUGS (1)
  1. LATANOPROST [Suspect]
     Active Substance: LATANOPROST
     Indication: Product used for unknown indication
     Dosage: 0.005%, 2.5ML
     Route: 047
     Dates: start: 202410

REACTIONS (3)
  - Eye pain [Unknown]
  - Skin ulcer [Unknown]
  - Trichodynia [Unknown]

NARRATIVE: CASE EVENT DATE: 20241019
